FAERS Safety Report 10396247 (Version 1)
Quarter: 2014Q3

REPORT INFORMATION
  Report Type: Spontaneous
  Country: CA (occurrence: CA)
  Receive Date: 20140820
  Receipt Date: 20140820
  Transmission Date: 20150326
  Serious: Yes (Other)
  Sender: FDA-Public Use
  Company Number: PHHY2014CA100339

PATIENT
  Sex: Female

DRUGS (1)
  1. BISOPROLOL SANDOZ [Suspect]
     Active Substance: BISOPROLOL
     Indication: BLOOD PRESSURE
     Dosage: 2.5 MG, QD
     Dates: end: 201407

REACTIONS (3)
  - Blindness [Recovering/Resolving]
  - Intraocular pressure test [Recovering/Resolving]
  - Visual impairment [Recovering/Resolving]
